FAERS Safety Report 5595253-0 (Version None)
Quarter: 2008Q1

REPORT INFORMATION
  Report Type: 
  Country: None (occurrence: None)
  Receive Date: 20080117
  Receipt Date: 20080107
  Transmission Date: 20080703
  Serious: Yes (Hospitalization)
  Sender: FDA-Public Use
  Company Number: NL-PFIZER INC-2008002437

PATIENT
  Sex: Male
  Weight: 95 kg

DRUGS (1)
  1. LYRICA [Suspect]
     Indication: POLYNEUROPATHY
     Route: 048
     Dates: start: 20071128, end: 20071205

REACTIONS (1)
  - FAECAL INCONTINENCE [None]
